FAERS Safety Report 5085878-3 (Version None)
Quarter: 2006Q3

REPORT INFORMATION
  Report Type: 
  Country: None (occurrence: None)
  Receive Date: 20060817
  Receipt Date: 20060804
  Transmission Date: 20061208
  Serious: Yes (Hospitalization)
  Sender: FDA-Public Use
  Company Number: 06081825

PATIENT
  Age: 70 Year
  Sex: Female

DRUGS (3)
  1. CLOBETASOL PROPIONATE [Suspect]
     Dosage: TOPICAL
     Route: 061
  2. CICLOPIROX (CICLOPIROX) [Concomitant]
  3. PRAMOSONE [Concomitant]

REACTIONS (1)
  - SWELLING FACE [None]
